FAERS Safety Report 13048345 (Version 1)
Quarter: 2016Q4

REPORT INFORMATION
  Report Type: Spontaneous
  Country: US (occurrence: US)
  Receive Date: 20161220
  Receipt Date: 20161220
  Transmission Date: 20170207
  Serious: No
  Sender: FDA-Public Use
  Company Number: US-ACTAVIS-2016-08563

PATIENT

DRUGS (1)
  1. CLONAZEPAM (AELLC) [Suspect]
     Active Substance: CLONAZEPAM
     Indication: PRODUCT USED FOR UNKNOWN INDICATION
     Dosage: UNK, UNKNOWN
     Route: 065

REACTIONS (6)
  - Irritability [Unknown]
  - Hyperhidrosis [Unknown]
  - Therapeutic response changed [Unknown]
  - Poor quality sleep [Unknown]
  - Heart rate increased [Unknown]
  - Drug ineffective [Unknown]
